FAERS Safety Report 12707306 (Version 1)
Quarter: 2016Q3

REPORT INFORMATION
  Report Type: Spontaneous
  Country: US (occurrence: US)
  Receive Date: 20160901
  Receipt Date: 20160901
  Transmission Date: 20161109
  Serious: No
  Sender: FDA-Public Use
  Company Number: US-THE MEDICINES COMPANY-US-MDCO-16-00223

PATIENT
  Age: 21 Year
  Sex: Female

DRUGS (7)
  1. CIPROFLOXACIN. [Concomitant]
     Active Substance: CIPROFLOXACIN
     Indication: PNEUMONIA STAPHYLOCOCCAL
     Dosage: NOT REPORTED
     Route: 041
  2. ORBACTIV [Suspect]
     Active Substance: ORITAVANCIN
     Route: 041
  3. CEFEPIME [Concomitant]
     Active Substance: CEFEPIME HYDROCHLORIDE
     Indication: PNEUMONIA STAPHYLOCOCCAL
     Dosage: NOT REPORTED
     Route: 041
  4. MOXIFLOXACIN. [Concomitant]
     Active Substance: MOXIFLOXACIN
     Indication: PNEUMONIA STAPHYLOCOCCAL
     Dosage: NOT REPORTED
     Route: 041
  5. ORBACTIV [Suspect]
     Active Substance: ORITAVANCIN
     Indication: PNEUMONIA STAPHYLOCOCCAL
     Route: 041
  6. VANCOMYCIN [Concomitant]
     Active Substance: VANCOMYCIN
     Indication: PNEUMONIA STAPHYLOCOCCAL
     Dosage: NOT REPORTED
     Route: 041
  7. ORBACTIV [Suspect]
     Active Substance: ORITAVANCIN
     Route: 041

REACTIONS (2)
  - No adverse event [Unknown]
  - Off label use [Unknown]
